FAERS Safety Report 4534079-3 (Version None)
Quarter: 2004Q4

REPORT INFORMATION
  Report Type: 
  Country: None (occurrence: None)
  Receive Date: 20041222
  Receipt Date: 20041209
  Transmission Date: 20050328
  Serious: Yes (Hospitalization)
  Sender: FDA-Public Use
  Company Number: FR-JNJFOC-20041202542

PATIENT
  Sex: Female

DRUGS (12)
  1. INFLIXIMAB [Suspect]
     Route: 042
  2. INFLIXIMAB [Suspect]
     Route: 042
  3. INFLIXIMAB [Suspect]
     Route: 042
  4. INFLIXIMAB [Suspect]
     Route: 042
  5. INFLIXIMAB [Suspect]
     Route: 042
  6. INFLIXIMAB [Suspect]
     Indication: ANKYLOSING SPONDYLITIS
     Route: 042
  7. METHOTREXATE [Concomitant]
     Route: 065
  8. BI-PROFENID [Concomitant]
     Dosage: 3 QD
     Route: 049
  9. SKENAN [Concomitant]
     Dosage: 70 BID
     Route: 049
  10. SOLU-MEDROL [Concomitant]
     Dosage: 20 QID
     Route: 049
  11. DOLIPRANE [Concomitant]
     Dosage: 4 QD
     Route: 049
  12. OMEPRAZOLE [Concomitant]
     Route: 049

REACTIONS (2)
  - DEPRESSION [None]
  - DRUG INEFFECTIVE [None]
